FAERS Safety Report 21913538 (Version 1)
Quarter: 2023Q1

REPORT INFORMATION
  Report Type: Spontaneous
  Country: US (occurrence: US)
  Receive Date: 20230125
  Receipt Date: 20230125
  Transmission Date: 20230417
  Serious: No
  Sender: FDA-Public Use
  Company Number: US-BAUSCHBL-2023BNL000437

PATIENT
  Age: 26 Year
  Sex: Male

DRUGS (1)
  1. GENTAMICIN SULFATE [Suspect]
     Active Substance: GENTAMICIN SULFATE
     Indication: Product used for unknown indication
     Dosage: RIGHT EYE
     Route: 047
     Dates: start: 20230110, end: 20230116

REACTIONS (4)
  - Influenza like illness [Unknown]
  - Instillation site erythema [Unknown]
  - Toxicity to various agents [Unknown]
  - Instillation site irritation [Unknown]

NARRATIVE: CASE EVENT DATE: 20230101
